FAERS Safety Report 18236313 (Version 1)
Quarter: 2020Q3

REPORT INFORMATION
  Report Type: Spontaneous
  Country: US (occurrence: US)
  Receive Date: 20200906
  Receipt Date: 20200906
  Transmission Date: 20201103
  Serious: Yes (Hospitalization, Other)
  Sender: FDA-Public Use
  Company Number: US-ROCHE-2669267

PATIENT
  Age: 50 Year
  Sex: Female
  Weight: 95.25 kg

DRUGS (2)
  1. CELEBREX [Suspect]
     Active Substance: CELECOXIB
     Indication: OSTEOARTHRITIS
     Route: 048
  2. XELODA [Suspect]
     Active Substance: CAPECITABINE
     Indication: PRODUCT USED FOR UNKNOWN INDICATION
     Route: 048

REACTIONS (3)
  - Colorectal cancer [Recovered/Resolved]
  - Tumour excision [Recovered/Resolved]
  - Ileostomy [Recovered/Resolved]

NARRATIVE: CASE EVENT DATE: 201708
